FAERS Safety Report 4306044-2 (Version None)
Quarter: 2004Q1

REPORT INFORMATION
  Report Type: 
  Country: None (occurrence: None)
  Receive Date: 20040225
  Receipt Date: 20030113
  Transmission Date: 20041129
  Serious: No
  Sender: FDA-Public Use
  Company Number: US-BRISTOL-MYERS SQUIBB COMPANY-12165387

PATIENT
  Age: 44 Year
  Sex: Female
  Weight: 75 kg

DRUGS (1)
  1. EXCEDRIN (MIGRAINE) [Suspect]
     Indication: TOOTHACHE
     Dosage: DOSE VALUE:  2 DOSAGE FORM INITIALLY, THEN 1 DOSAGE FORM FOUR HOURS LATER.
     Route: 048
     Dates: start: 20030111, end: 20030111

REACTIONS (1)
  - DRUG INEFFECTIVE [None]
